FAERS Safety Report 9142284 (Version 1)
Quarter: 2013Q1

REPORT INFORMATION
  Report Type: Spontaneous
  Country: US (occurrence: US)
  Receive Date: 20130305
  Receipt Date: 20130305
  Transmission Date: 20140127
  Serious: Yes (Death, Other)
  Sender: FDA-Public Use
  Company Number: US-SANOFI-AVENTIS-2013SA021182

PATIENT
  Sex: 0

DRUGS (2)
  1. PLAVIX [Suspect]
     Dates: start: 200901
  2. ASPIRIN [Suspect]
     Dates: start: 200901

REACTIONS (5)
  - Death [Fatal]
  - Myocardial infarction [Unknown]
  - Thrombotic thrombocytopenic purpura [Unknown]
  - Gastrointestinal haemorrhage [Unknown]
  - Ulcer haemorrhage [Unknown]
